FAERS Safety Report 19215724 (Version 2)
Quarter: 2023Q4

REPORT INFORMATION
  Report Type: Spontaneous
  Country: US (occurrence: US)
  Receive Date: 20210505
  Receipt Date: 20231212
  Transmission Date: 20240110
  Serious: Yes (Other)
  Sender: FDA-Public Use
  Company Number: US-AUROBINDO-AUR-APL-2021-017525

PATIENT
  Age: 68 Year
  Sex: Male

DRUGS (23)
  1. LEVOFLOXACIN [Suspect]
     Active Substance: LEVOFLOXACIN
     Indication: Burkholderia gladioli infection
     Dosage: 750 MILLIGRAM
     Route: 042
  2. LEVOFLOXACIN [Suspect]
     Active Substance: LEVOFLOXACIN
     Indication: Pneumonia
     Dosage: 500 MILLIGRAM, EVERY OTHER DAY
     Route: 042
  3. LEVOFLOXACIN [Suspect]
     Active Substance: LEVOFLOXACIN
     Indication: Shock
  4. MEROPENEM [Suspect]
     Active Substance: MEROPENEM
     Indication: Burkholderia gladioli infection
     Dosage: 500 MILLIGRAM, 3 TIMES A DAY
     Route: 042
  5. MEROPENEM [Suspect]
     Active Substance: MEROPENEM
     Indication: Pneumonia
  6. MEROPENEM [Suspect]
     Active Substance: MEROPENEM
     Indication: Shock
  7. VANCOMYCIN [Suspect]
     Active Substance: VANCOMYCIN
     Indication: Burkholderia gladioli infection
     Dosage: UNK
     Route: 042
  8. VANCOMYCIN [Suspect]
     Active Substance: VANCOMYCIN
     Indication: Pneumonia
  9. VANCOMYCIN [Suspect]
     Active Substance: VANCOMYCIN
     Indication: Shock
  10. MIDODRINE HYDROCHLORIDE [Suspect]
     Active Substance: MIDODRINE HYDROCHLORIDE
     Indication: Burkholderia gladioli infection
     Dosage: UNK
     Route: 065
  11. PHENYLEPHRINE [Suspect]
     Active Substance: PHENYLEPHRINE HYDROCHLORIDE
     Indication: Burkholderia gladioli infection
     Dosage: UNK
     Route: 065
  12. VASOPRESSIN [Suspect]
     Active Substance: VASOPRESSIN
     Indication: Burkholderia gladioli infection
     Dosage: UNK
     Route: 065
  13. NOREPINEPHRINE [Suspect]
     Active Substance: NOREPINEPHRINE
     Indication: Burkholderia gladioli infection
     Dosage: UNK
     Route: 065
  14. CEFEPIME [Suspect]
     Active Substance: CEFEPIME HYDROCHLORIDE
     Indication: Burkholderia gladioli infection
     Dosage: UNK
     Route: 042
  15. CEFEPIME [Suspect]
     Active Substance: CEFEPIME HYDROCHLORIDE
     Indication: Pneumonia
  16. CEFEPIME [Suspect]
     Active Substance: CEFEPIME HYDROCHLORIDE
     Indication: Shock
  17. CEFTRIAXONE [Concomitant]
     Active Substance: CEFTRIAXONE\CEFTRIAXONE SODIUM
     Indication: Pneumonia
     Dosage: 2 GRAM, ONCE A DAY
     Route: 042
  18. AZITHROMYCIN [Concomitant]
     Active Substance: AZITHROMYCIN
     Indication: Pneumonia
     Dosage: UNK
     Route: 042
  19. DEXAMETHASONE [Concomitant]
     Active Substance: DEXAMETHASONE
     Indication: Product used for unknown indication
     Dosage: 20 MILLIGRAM, ONCE A DAY
     Route: 042
  20. COVID-19 CONVALESCENT PLASMA [Concomitant]
     Active Substance: COVID-19 CONVALESCENT PLASMA
     Indication: COVID-19
     Dosage: 200 MILLILITER
     Route: 065
  21. VANCOMYCIN [Concomitant]
     Active Substance: VANCOMYCIN
     Indication: Product used for unknown indication
     Dosage: UNK
     Route: 065
  22. CEFEPIME [Concomitant]
     Active Substance: CEFEPIME HYDROCHLORIDE
     Indication: Product used for unknown indication
     Dosage: UNK
     Route: 065
  23. ROCURONIUM BROMIDE [Concomitant]
     Active Substance: ROCURONIUM BROMIDE
     Indication: Product used for unknown indication
     Dosage: UNK
     Route: 065

REACTIONS (1)
  - Drug ineffective [Unknown]
